FAERS Safety Report 4308718-6 (Version None)
Quarter: 2004Q1

REPORT INFORMATION
  Report Type: 
  Country: None (occurrence: None)
  Receive Date: 20040301
  Receipt Date: 20040301
  Transmission Date: 20041129
  Serious: Yes (Hospitalization)
  Sender: FDA-Public Use
  Company Number: None

PATIENT
  Age: 53 Year
  Sex: Male

DRUGS (1)
  1. GLIPIZIDE [Suspect]

REACTIONS (7)
  - HYPERHIDROSIS [None]
  - HYPOGLYCAEMIA [None]
  - NAUSEA [None]
  - NERVOUSNESS [None]
  - RENAL FAILURE [None]
  - SYNCOPE [None]
  - TREMOR [None]
